FAERS Safety Report 7985428-5 (Version None)
Quarter: 2011Q4

REPORT INFORMATION
  Report Type: 
  Country: None (occurrence: None)
  Receive Date: 20111216
  Receipt Date: 20111205
  Transmission Date: 20120403
  Serious: Yes (Other)
  Sender: FDA-Public Use
  Company Number: CO-ROCHE-1021760

PATIENT
  Sex: Male

DRUGS (5)
  1. DESLORATADINE [Concomitant]
  2. FLUTICASONE PROPIONATE/SALMETEROL [Concomitant]
  3. MONTELUKAST SODIUM [Concomitant]
  4. ALBUTEROL SULFATE AUTOHALER [Concomitant]
  5. XOLAIR [Suspect]
     Indication: ASTHMA
     Route: 058
     Dates: start: 20110629

REACTIONS (1)
  - ASTHMATIC CRISIS [None]
